FAERS Safety Report 5394368-X (Version None)
Quarter: 2007Q3

REPORT INFORMATION
  Report Type: 
  Country: None (occurrence: None)
  Receive Date: 20070723
  Receipt Date: 20070718
  Transmission Date: 20080115
  Serious: Yes (Other)
  Sender: FDA-Public Use
  Company Number: GBWYE045018JUL07

PATIENT
  Sex: Female

DRUGS (2)
  1. EFFEXOR [Suspect]
     Dosage: UNKNOWN
  2. MIRTAZAPINE [Concomitant]
     Dosage: UNKNOWN

REACTIONS (1)
  - INTRACRANIAL PRESSURE INCREASED [None]
